FAERS Safety Report 9868906 (Version 2)
Quarter: 2014Q1

REPORT INFORMATION
  Report Type: Spontaneous
  Country: NO (occurrence: NO)
  Receive Date: 20140204
  Receipt Date: 20140213
  Transmission Date: 20141002
  Serious: Yes (Other)
  Sender: FDA-Public Use
  Company Number: NO-MERCK-1402NOR001160

PATIENT
  Age: 3 Year
  Sex: Male

DRUGS (3)
  1. SINGULAIR [Suspect]
     Indication: ASTHMA
     Dosage: 4 MG, QD
     Route: 048
     Dates: start: 20130513, end: 20130605
  2. FLUTIDE [Concomitant]
     Indication: ASTHMA
     Dosage: 100 MICROGRAM, BID
  3. VENTOLINE (ALBUTEROL SULFATE) [Concomitant]
     Indication: ASTHMA
     Dosage: AS NEEDED, MAXIMUM 4 PER DAY
     Route: 055

REACTIONS (4)
  - Mood altered [Recovered/Resolved]
  - Nightmare [Recovered/Resolved]
  - Aggression [Recovered/Resolved]
  - Depression [Recovered/Resolved]
